FAERS Safety Report 16349877 (Version 1)
Quarter: 2019Q2

REPORT INFORMATION
  Report Type: Spontaneous
  Country: US (occurrence: US)
  Receive Date: 20190417
  Receipt Date: 20190417
  Transmission Date: 20190711
  Serious: Yes (Hospitalization)
  Sender: FDA-Public Use
  Company Number: None

PATIENT
  Age: 29 Year
  Sex: Male

DRUGS (1)
  1. ATORVASTATIN [Suspect]
     Active Substance: ATORVASTATIN
     Indication: HYPERLIPIDAEMIA
     Route: 048
     Dates: start: 20190201, end: 20190326

REACTIONS (6)
  - Rhabdomyolysis [None]
  - Viral infection [None]
  - Poisoning [None]
  - Hypokalaemia [None]
  - Acute kidney injury [None]
  - Anuria [None]

NARRATIVE: CASE EVENT DATE: 20190319
